FAERS Safety Report 20589052 (Version 3)
Quarter: 2022Q2

REPORT INFORMATION
  Report Type: Spontaneous
  Country: GB (occurrence: GB)
  Receive Date: 20220314
  Receipt Date: 20220531
  Transmission Date: 20220721
  Serious: Yes (Other)
  Sender: FDA-Public Use
  Company Number: GB-MYLANLABS-2022M1018473

PATIENT
  Age: 57 Year
  Sex: Male

DRUGS (5)
  1. CLOZARIL [Suspect]
     Active Substance: CLOZAPINE
     Indication: Schizophrenia
     Dosage: 650 MILLIGRAM, QD
     Route: 048
     Dates: start: 20090707
  2. ARIPIPRAZOLE [Concomitant]
     Active Substance: ARIPIPRAZOLE
     Indication: Schizophrenia
     Dosage: 5 MILLIGRAM, QD
     Route: 048
  3. VALPROATE SODIUM [Concomitant]
     Active Substance: VALPROATE SODIUM
     Indication: Schizophrenia
     Dosage: 800 MILLIGRAM, BID
     Route: 048
  4. LITHIUM CARBONATE [Concomitant]
     Active Substance: LITHIUM CARBONATE
     Indication: Schizophrenia
     Dosage: 800 MILLIGRAM, BID
     Route: 048
  5. VORTIOXETINE [Concomitant]
     Active Substance: VORTIOXETINE
     Indication: Schizophrenia
     Dosage: 20 MILLIGRAM, QD
     Route: 048

REACTIONS (7)
  - Thrombocytopenia [Recovered/Resolved]
  - Eosinophil count decreased [Recovered/Resolved]
  - White blood cell count decreased [Recovered/Resolved]
  - Liver function test abnormal [Unknown]
  - Blood test abnormal [Unknown]
  - Change of bowel habit [Unknown]
  - Weight loss diet [Unknown]

NARRATIVE: CASE EVENT DATE: 20220307
